FAERS Safety Report 5980651-3 (Version None)
Quarter: 2008Q4

REPORT INFORMATION
  Report Type: 
  Country: None (occurrence: None)
  Receive Date: 20081205
  Receipt Date: 20080228
  Transmission Date: 20090506
  Serious: No
  Sender: FDA-Public Use
  Company Number: A0712401A

PATIENT
  Age: 55 Year
  Sex: Female

DRUGS (1)
  1. COMMIT [Suspect]

REACTIONS (7)
  - DRY MOUTH [None]
  - DRY SKIN [None]
  - INTENTIONAL DRUG MISUSE [None]
  - IRRITABILITY [None]
  - LIP DRY [None]
  - SENSORY DISTURBANCE [None]
  - WITHDRAWAL SYNDROME [None]
